FAERS Safety Report 5532941-6 (Version None)
Quarter: 2007Q4

REPORT INFORMATION
  Report Type: 
  Country: None (occurrence: None)
  Receive Date: 20071128
  Receipt Date: 20071114
  Transmission Date: 20080405
  Serious: Yes (Hospitalization)
  Sender: FDA-Public Use
  Company Number: 230319J07USA

PATIENT
  Age: 29 Year
  Sex: Female
  Weight: 61.6892 kg

DRUGS (2)
  1. REBIF [Suspect]
     Indication: MULTIPLE SCLEROSIS
     Dosage: 44 MCG, 3 IN 1 WEEKS, SUBCUTANEOUS
     Route: 058
     Dates: start: 20061106
  2. CARBATROL [Concomitant]

REACTIONS (2)
  - NYSTAGMUS [None]
  - OPTIC NEURITIS [None]
